FAERS Safety Report 22538472 (Version 1)
Quarter: 2023Q2

REPORT INFORMATION
  Report Type: Spontaneous
  Country: US (occurrence: US)
  Receive Date: 20230609
  Receipt Date: 20230609
  Transmission Date: 20230722
  Serious: Yes (Other)
  Sender: FDA-Public Use
  Company Number: US-PFIZER INC-PV202300099983

PATIENT
  Age: 59 Year
  Sex: Male

DRUGS (2)
  1. BOSULIF [Suspect]
     Active Substance: BOSUTINIB MONOHYDRATE
     Indication: Chronic myeloid leukaemia
     Dosage: UNK
     Dates: end: 2023
  2. DUPIXENT [Suspect]
     Active Substance: DUPILUMAB
     Dosage: 300 MG, WEEKLY [300 MG QOW]
     Route: 058
     Dates: start: 202304

REACTIONS (2)
  - Eosinophilic pneumonia [Unknown]
  - Eczema [Unknown]

NARRATIVE: CASE EVENT DATE: 20230101
